FAERS Safety Report 11668657 (Version 1)
Quarter: 2015Q4

REPORT INFORMATION
  Report Type: Spontaneous
  Country: US (occurrence: US)
  Receive Date: 20151027
  Receipt Date: 20151027
  Transmission Date: 20160304
  Serious: No
  Sender: FDA-Public Use
  Company Number: US-GLAXOSMITHKLINE-US2015GSK152452

PATIENT
  Sex: Female

DRUGS (3)
  1. MALARONE [Suspect]
     Active Substance: ATOVAQUONE\PROGUANIL HYDROCHLORIDE
     Indication: BABESIOSIS
  2. MEPRON [Suspect]
     Active Substance: ATOVAQUONE
     Indication: BABESIOSIS
  3. QUININE SULPHATE [Suspect]
     Active Substance: QUININE SULFATE
     Indication: BABESIOSIS

REACTIONS (2)
  - Treatment failure [Unknown]
  - Drug ineffective [Unknown]
